FAERS Safety Report 17063179 (Version 2)
Quarter: 2020Q1

REPORT INFORMATION
  Report Type: Spontaneous
  Country: US (occurrence: US)
  Receive Date: 20191122
  Receipt Date: 20200129
  Transmission Date: 20200409
  Serious: Yes (Other)
  Sender: FDA-Public Use
  Company Number: US-BAYER-2019-211247

PATIENT
  Age: 23 Year
  Sex: Female
  Weight: 54.4 kg

DRUGS (1)
  1. MIRENA [Suspect]
     Active Substance: LEVONORGESTREL
     Indication: CONTRACEPTION
     Dosage: 20 MCG/24HR, CONT
     Route: 015
     Dates: start: 20191118, end: 20191118

REACTIONS (2)
  - Uterine perforation [Recovering/Resolving]
  - Complication of device insertion [None]

NARRATIVE: CASE EVENT DATE: 20191118
